FAERS Safety Report 9114987 (Version 3)
Quarter: 2016Q1

REPORT INFORMATION
  Report Type: Spontaneous
  Country: US (occurrence: US)
  Receive Date: 20130225
  Receipt Date: 20160107
  Transmission Date: 20160526
  Serious: Yes (Hospitalization)
  Sender: FDA-Public Use
  Company Number: US-COVIDIEN/TYCO HEALTHCARE/MALLINCKRODT-T201204523

PATIENT
  Age: 40 Year
  Sex: Female

DRUGS (1)
  1. GABLOFEN [Suspect]
     Active Substance: BACLOFEN
     Indication: MUSCLE SPASTICITY
     Dosage: 350 MCG/DAY
     Route: 037

REACTIONS (7)
  - Pruritus [Recovering/Resolving]
  - Heart rate increased [Recovering/Resolving]
  - Device failure [Unknown]
  - Drug withdrawal syndrome [Recovering/Resolving]
  - Cerebrospinal fluid leakage [Recovering/Resolving]
  - Muscle spasticity [Recovering/Resolving]
  - Pain in extremity [Recovering/Resolving]

NARRATIVE: CASE EVENT DATE: 20120408
